FAERS Safety Report 20939574 (Version 1)
Quarter: 2022Q2

REPORT INFORMATION
  Report Type: Spontaneous
  Country: US (occurrence: None)
  Receive Date: 20220609
  Receipt Date: 20220609
  Transmission Date: 20220720
  Serious: Yes (Life-Threatening, Hospitalization)
  Sender: FDA-Public Use
  Company Number: None

PATIENT
  Age: 76 Year
  Sex: Female
  Weight: 72.57 kg

DRUGS (10)
  1. HYDROCHLOROTHIAZIDE [Suspect]
     Active Substance: HYDROCHLOROTHIAZIDE
     Indication: Hypertension
     Dosage: FREQUENCY : DAILY;?
     Dates: start: 20210925
  2. HYDROCHLOROTHIAZIDE [Suspect]
     Active Substance: HYDROCHLOROTHIAZIDE
     Indication: Oedema
  3. METFORMIN (GLUCOPHAGE-XR) [Concomitant]
  4. ZOLOFT [Concomitant]
     Active Substance: SERTRALINE HYDROCHLORIDE
  5. ZESTRIL [Concomitant]
     Active Substance: LISINOPRIL
  6. ZOCOR [Concomitant]
     Active Substance: SIMVASTATIN
  7. CELEBREX [Concomitant]
     Active Substance: CELECOXIB
  8. BUTALBITAL-ASPIRIN-CAFFEINE (FIORINAL) [Concomitant]
  9. DICYCLOMINE (BENTYL) [Concomitant]
  10. MULTIPLE VITAMINS-CALCIUM (VIACTIV MULTI-VITAMIN) [Concomitant]

REACTIONS (10)
  - Circulatory collapse [None]
  - Food poisoning [None]
  - Dehydration [None]
  - Metabolic disorder [None]
  - Sepsis [None]
  - Acute kidney injury [None]
  - Loss of consciousness [None]
  - Gait disturbance [None]
  - Electrolyte depletion [None]
  - Product monitoring error [None]

NARRATIVE: CASE EVENT DATE: 20210925
